FAERS Safety Report 11813319 (Version 1)
Quarter: 2015Q4

REPORT INFORMATION
  Report Type: Spontaneous
  Country: US (occurrence: None)
  Receive Date: 20151208
  Receipt Date: 20151208
  Transmission Date: 20160305
  Serious: Yes (Hospitalization)
  Sender: FDA-Public Use
  Company Number: None

PATIENT
  Age: 89 Year
  Sex: Female
  Weight: 67.1 kg

DRUGS (15)
  1. MUCINEX [Concomitant]
     Active Substance: GUAIFENESIN
  2. LASIX [Concomitant]
     Active Substance: FUROSEMIDE
  3. APRISO [Concomitant]
     Active Substance: MESALAMINE
  4. TRAVATAN [Concomitant]
     Active Substance: TRAVOPROST
  5. VANCOCIN [Concomitant]
     Active Substance: VANCOMYCIN HYDROCHLORIDE
  6. XARELTO [Suspect]
     Active Substance: RIVAROXABAN
     Indication: CEREBROVASCULAR ACCIDENT PROPHYLAXIS
     Route: 048
  7. LOTENSIN [Concomitant]
     Active Substance: BENAZEPRIL HYDROCHLORIDE
  8. KLOR-CON [Concomitant]
     Active Substance: POTASSIUM CHLORIDE
  9. NORVASC [Concomitant]
     Active Substance: AMLODIPINE BESYLATE
  10. LANOXIN [Concomitant]
     Active Substance: DIGOXIN
  11. CYMBALTA [Concomitant]
     Active Substance: DULOXETINE HYDROCHLORIDE
  12. QUESTRAN [Concomitant]
     Active Substance: CHOLESTYRAMINE
  13. APAP #3 [Concomitant]
  14. MVI [Concomitant]
     Active Substance: VITAMINS
  15. CELEBREX [Suspect]
     Active Substance: CELECOXIB
     Indication: PAIN
     Dosage: PRN
     Route: 048

REACTIONS (3)
  - Anaemia [None]
  - Gastrointestinal angiodysplasia [None]
  - Melaena [None]

NARRATIVE: CASE EVENT DATE: 20150317
